FAERS Safety Report 7623428-5 (Version None)
Quarter: 2011Q3

REPORT INFORMATION
  Report Type: 
  Country: None (occurrence: None)
  Receive Date: 20110720
  Receipt Date: 20110707
  Transmission Date: 20111222
  Serious: Yes (Other)
  Sender: FDA-Public Use
  Company Number: US-UCBSA-018327

PATIENT
  Sex: Male
  Weight: 7.71 kg

DRUGS (6)
  1. ZOFRAN [Concomitant]
     Indication: VOMITING IN PREGNANCY
     Route: 064
     Dates: start: 20100701
  2. KEPPRA [Suspect]
     Route: 063
  3. FOLIC ACID [Concomitant]
     Indication: PREGNANCY
     Route: 064
  4. PRENATAL VITAMINS [Concomitant]
     Indication: PREGNANCY
     Dosage: 1 TAB QD
     Route: 064
  5. KEPPRA [Suspect]
     Indication: EPILEPSY
     Dosage: PRIOR TO CONCEPTION
     Route: 064
  6. FOLIC ACID [Concomitant]
     Dosage: 4MG OF EXTRA FOLIC ACID
     Route: 064

REACTIONS (5)
  - CALCINOSIS [None]
  - PREMATURE BABY [None]
  - EXPOSURE DURING BREAST FEEDING [None]
  - ULTRASOUND ANTENATAL SCREEN ABNORMAL [None]
  - MATERNAL EXPOSURE DURING PREGNANCY [None]
